FAERS Safety Report 8065189-4 (Version None)
Quarter: 2012Q1

REPORT INFORMATION
  Report Type: 
  Country: None (occurrence: None)
  Receive Date: 20120124
  Receipt Date: 20120118
  Transmission Date: 20120608
  Serious: Yes (Death, Life-Threatening, Hospitalization, Other)
  Sender: FDA-Public Use
  Company Number: US-AMGEN-USASP2011046673

PATIENT
  Age: 69 Year
  Sex: Male
  Weight: 110 kg

DRUGS (8)
  1. CORTICOSTEROIDS [Concomitant]
     Indication: IDIOPATHIC THROMBOCYTOPENIC PURPURA
     Dosage: UNK
  2. CARVEDILOL [Concomitant]
     Dosage: 3.125 MG, BID
     Route: 048
  3. AMIODARONE HCL [Concomitant]
     Dosage: 200 MG, UNK
     Route: 048
  4. INSULIN ASPART [Concomitant]
     Dosage: UNK
     Route: 058
  5. FUROSEMIDE [Concomitant]
     Dosage: 40 MG, BID
     Route: 048
  6. NPLATE [Suspect]
     Indication: IDIOPATHIC THROMBOCYTOPENIC PURPURA
     Dosage: 550 MUG, QWK
     Route: 058
     Dates: start: 20100714, end: 20110513
  7. NPLATE [Suspect]
  8. LEVOTHYROXINE SODIUM [Concomitant]
     Dosage: 0.175 MG, QD
     Route: 048

REACTIONS (7)
  - RENAL FAILURE [None]
  - OBESITY [None]
  - VENTRICULAR TACHYCARDIA [None]
  - CARDIOGENIC SHOCK [None]
  - CARDIAC FAILURE CONGESTIVE [None]
  - ATRIAL FIBRILLATION [None]
  - RESPIRATORY DISTRESS [None]
